FAERS Safety Report 15554034 (Version 1)
Quarter: 2018Q4

REPORT INFORMATION
  Report Type: Report from Study
  Country: None (occurrence: US)
  Receive Date: 20181026
  Receipt Date: 20181026
  Transmission Date: 20190205
  Serious: Yes (Other)
  Sender: FDA-Public Use
  Company Number: US-ABBVIE-17K-163-2147021-00

PATIENT
  Age: 79 Year
  Sex: Female

DRUGS (3)
  1. HUMIRA [Suspect]
     Active Substance: ADALIMUMAB
     Indication: RHEUMATOID ARTHRITIS
     Route: 058
     Dates: start: 20171009, end: 201712
  2. HUMIRA [Suspect]
     Active Substance: ADALIMUMAB
     Route: 058
     Dates: start: 2018
  3. HUMIRA [Suspect]
     Active Substance: ADALIMUMAB
     Indication: COLITIS ULCERATIVE
     Route: 058
     Dates: start: 2017, end: 2018

REACTIONS (15)
  - Bronchitis [Unknown]
  - Depression [Unknown]
  - Fatigue [Unknown]
  - Nasopharyngitis [Unknown]
  - Arthralgia [Recovering/Resolving]
  - Rhinorrhoea [Unknown]
  - Joint stiffness [Recovering/Resolving]
  - Pain in extremity [Recovered/Resolved]
  - Asthma [Unknown]
  - Musculoskeletal pain [Recovered/Resolved]
  - Pain [Recovering/Resolving]
  - Pain [Recovered/Resolved]
  - Blindness [Unknown]
  - Joint swelling [Recovered/Resolved]
  - Ovarian cyst [Unknown]

NARRATIVE: CASE EVENT DATE: 20171009
